FAERS Safety Report 5654514-7 (Version None)
Quarter: 2008Q1

REPORT INFORMATION
  Report Type: 
  Country: None (occurrence: None)
  Receive Date: 20080307
  Receipt Date: 20080305
  Transmission Date: 20080703
  Serious: Yes (Life-Threatening, Hospitalization, Other)
  Sender: FDA-Public Use
  Company Number: US-BAYER-200714585BWH

PATIENT
  Age: 83 Year
  Sex: Female

DRUGS (5)
  1. CIPRO [Suspect]
     Indication: COLITIS
     Route: 042
     Dates: start: 20071018, end: 20071018
  2. CIPRO [Suspect]
     Route: 042
     Dates: start: 20071019, end: 20071019
  3. CIPRO [Suspect]
     Route: 042
     Dates: start: 20071019, end: 20071019
  4. ATIVAN [Concomitant]
     Route: 030
     Dates: start: 20071019
  5. IV FLUIDS [Concomitant]

REACTIONS (8)
  - BRAIN OEDEMA [None]
  - CONFUSIONAL STATE [None]
  - DEPRESSED LEVEL OF CONSCIOUSNESS [None]
  - DRUG HYPERSENSITIVITY [None]
  - DYSKINESIA [None]
  - MYOCARDIAL INFARCTION [None]
  - RENAL IMPAIRMENT [None]
  - SEPSIS [None]
